FAERS Safety Report 4345230-2 (Version None)
Quarter: 2004Q2

REPORT INFORMATION
  Report Type: 
  Country: None (occurrence: None)
  Receive Date: 20040421
  Receipt Date: 20040421
  Transmission Date: 20050107
  Serious: Yes (Hospitalization)
  Sender: FDA-Public Use
  Company Number: None

PATIENT
  Age: 15 Year
  Sex: Male
  Weight: 65 kg

DRUGS (1)
  1. ZIPRASIDONE 80 MG [Suspect]
     Indication: SCHIZOAFFECTIVE DISORDER
     Dosage: 80 MG DAILY ORAL
     Route: 048
     Dates: start: 20021021, end: 20021207

REACTIONS (2)
  - NEUROLEPTIC MALIGNANT SYNDROME [None]
  - RHABDOMYOLYSIS [None]
